FAERS Safety Report 6470818 (Version 2)
Quarter: 2020Q3

REPORT INFORMATION
  Report Type: Spontaneous
  Country: GB (occurrence: None)
  Receive Date: 20071107
  Receipt Date: 20071227
  Transmission Date: 20201104
  Serious: Yes (Death)
  Sender: FDA-Public Use
  Company Number: 17726

PATIENT
  Sex: Male

DRUGS (13)
  1. TAZOCIN [Concomitant]
  2. ZOMETA [Suspect]
     Active Substance: ZOLEDRONIC ACID
     Indication: HYPERCALCAEMIA OF MALIGNANCY
     Dosage: 4 MG Q3W IV
     Route: 042
     Dates: start: 20050302, end: 20070808
  3. CALCITONIN SALMON. [Suspect]
     Active Substance: CALCITONIN SALMON
     Indication: HYPERCALCAEMIA OF MALIGNANCY
     Dosage: 100 DF QD SC
     Route: 058
     Dates: start: 20070818
  4. GABAPENTIN. [Concomitant]
     Active Substance: GABAPENTIN
  5. CLARITHROMYCIN. [Concomitant]
     Active Substance: CLARITHROMYCIN
  6. OXYCONTIN [Concomitant]
     Active Substance: OXYCODONE HYDROCHLORIDE
  7. PAMIDRONATE DISODIUM. [Suspect]
     Active Substance: PAMIDRONATE DISODIUM
     Indication: HYPERCALCAEMIA OF MALIGNANCY
     Dosage: 120 MG FREQ IV
     Route: 042
     Dates: start: 20070630
  8. DEXAMETHASONE. [Concomitant]
     Active Substance: DEXAMETHASONE
  9. NYSTATIN. [Concomitant]
     Active Substance: NYSTATIN
  10. ONDANSETRON [Concomitant]
     Active Substance: ONDANSETRON
  11. CALCITONIN SALMON. [Suspect]
     Active Substance: CALCITONIN SALMON
     Indication: HYPERCALCAEMIA OF MALIGNANCY
     Dosage: 200 DF QD IH
     Route: 055
     Dates: start: 20070709
  12. IBANDRONIC ACID. [Suspect]
     Active Substance: IBANDRONIC ACID
     Indication: HYPERCALCAEMIA OF MALIGNANCY
     Dosage: 50 MG QD PO
     Route: 048
     Dates: start: 20070720, end: 20070818
  13. PNATOPRAZOLE [Concomitant]

REACTIONS (8)
  - Drug specific antibody present [None]
  - Metastatic renal cell carcinoma [None]
  - Metastases to central nervous system [None]
  - Hypercalcaemia of malignancy [None]
  - Therapy non-responder [None]
  - Condition aggravated [None]
  - Metastases to lung [None]
  - Neoplasm malignant [None]
